FAERS Safety Report 5446996-0 (Version None)
Quarter: 2007Q3

REPORT INFORMATION
  Report Type: 
  Country: None (occurrence: None)
  Receive Date: 20070810
  Receipt Date: 20061229
  Transmission Date: 20080115
  Serious: Yes (Other)
  Sender: FDA-Public Use
  Company Number: A03200700004

PATIENT
  Age: 75 Year
  Sex: Male

DRUGS (3)
  1. UROXATRAL [Suspect]
     Indication: URINARY INCONTINENCE
     Dosage: ORAL
     Route: 048
     Dates: start: 20061228
  2. ATORVASTATIN CALCIUM [Concomitant]
  3. ACETYLSALICYLIC ACID SRT [Concomitant]

REACTIONS (4)
  - GROIN PAIN [None]
  - MUSCULOSKELETAL DISCOMFORT [None]
  - NAUSEA [None]
  - PRIAPISM [None]
